FAERS Safety Report 8032974 (Version 3)
Quarter: 2014Q3

REPORT INFORMATION
  Report Type: Spontaneous
  Country: US (occurrence: US)
  Receive Date: 20110713
  Receipt Date: 20140805
  Transmission Date: 20150326
  Serious: Yes (Death, Other)
  Sender: FDA-Public Use
  Company Number: US-SANOFI-AVENTIS-2011SA043503

PATIENT
  Age: 82 Year
  Sex: Female
  Weight: 63.5 kg

DRUGS (22)
  1. MULTAQ [Suspect]
     Active Substance: DRONEDARONE
     Indication: ATRIAL FIBRILLATION
     Route: 048
     Dates: start: 20100817, end: 20110307
  2. VITAMIN D [Concomitant]
     Active Substance: CHOLECALCIFEROL
  3. TEMAZEPAM. [Concomitant]
     Active Substance: TEMAZEPAM
     Indication: SLEEP DISORDER
     Dates: start: 1996
  4. MAGNESIUM [Concomitant]
     Active Substance: MAGNESIUM
  5. METOPROLOL [Concomitant]
     Active Substance: METOPROLOL
     Indication: CARDIAC DISORDER
     Dates: start: 1996
  6. LEVOTHYROXINE [Concomitant]
     Active Substance: LEVOTHYROXINE
     Indication: GOITRE
     Dates: start: 2009
  7. ASPIRIN ^BAYER^ [Concomitant]
     Active Substance: ASPIRIN
     Indication: CARDIAC DISORDER
     Dates: start: 1996
  8. OMEPRAZOLE. [Concomitant]
     Active Substance: OMEPRAZOLE
  9. LUTEIN [Concomitant]
     Active Substance: LUTEIN
  10. MULTAQ [Suspect]
     Active Substance: DRONEDARONE
     Indication: ATRIAL FIBRILLATION
     Route: 048
     Dates: start: 20100817, end: 20110307
  11. OMEGA 3 [Concomitant]
     Active Substance: OMEGA-3 FATTY ACIDS
  12. AMIODARONE [Suspect]
     Active Substance: AMIODARONE
     Indication: PRODUCT USED FOR UNKNOWN INDICATION
     Route: 065
     Dates: start: 20090814, end: 20100609
  13. AMIODARONE [Suspect]
     Active Substance: AMIODARONE
     Indication: PRODUCT USED FOR UNKNOWN INDICATION
     Route: 051
     Dates: start: 20100609, end: 20100617
  14. LASIX [Concomitant]
     Active Substance: FUROSEMIDE
     Indication: CARDIAC DISORDER
     Dates: start: 1996
  15. ALL OTHER THERAPEUTIC PRODUCTS [Concomitant]
     Active Substance: UNSPECIFIED INGREDIENT
     Dosage: DOSE:25000 UNIT(S)
  16. VITAMIN B12 [Concomitant]
     Active Substance: CYANOCOBALAMIN
  17. KLOR-CON [Concomitant]
     Active Substance: POTASSIUM CHLORIDE
     Indication: MUSCLE SPASMS
     Dates: start: 1996
  18. VITAMIN B6 [Concomitant]
     Active Substance: PYRIDOXINE HYDROCHLORIDE
  19. MULTAQ [Suspect]
     Active Substance: DRONEDARONE
     Indication: ATRIAL FIBRILLATION
     Route: 048
     Dates: start: 20100817, end: 20110307
  20. FOSINOPRIL [Concomitant]
     Active Substance: FOSINOPRIL
     Indication: HYPERTENSION
     Dates: start: 1996
  21. VITAMIN C [Concomitant]
     Active Substance: ASCORBIC ACID
  22. COQ10 [Concomitant]
     Active Substance: UBIDECARENONE

REACTIONS (15)
  - Death [Fatal]
  - Suicidal ideation [Recovered/Resolved]
  - Alopecia [Not Recovered/Not Resolved]
  - Eye haemorrhage [Unknown]
  - Skin discolouration [Not Recovered/Not Resolved]
  - Glossitis [Unknown]
  - Gastrointestinal disorder [Unknown]
  - Dysphonia [Unknown]
  - Emotional disorder [Unknown]
  - Liver function test abnormal [Unknown]
  - Decreased appetite [Not Recovered/Not Resolved]
  - Goitre [Not Recovered/Not Resolved]
  - Condition aggravated [Unknown]
  - Feeling abnormal [Unknown]
  - Drug ineffective [Unknown]

NARRATIVE: CASE EVENT DATE: 2011
